FAERS Safety Report 16801205 (Version 1)
Quarter: 2019Q3

REPORT INFORMATION
  Report Type: Spontaneous
  Country: US (occurrence: US)
  Receive Date: 20190912
  Receipt Date: 20190912
  Transmission Date: 20191005
  Serious: No
  Sender: FDA-Public Use
  Company Number: US-ASTELLAS-2019US033265

PATIENT
  Sex: Male

DRUGS (4)
  1. XTANDI [Suspect]
     Active Substance: ENZALUTAMIDE
     Indication: BLOOD TESTOSTERONE INCREASED
     Dosage: UNK, UNKNOWN FREQ.
     Route: 065
  2. FIRMAGON [Concomitant]
     Active Substance: DEGARELIX ACETATE
     Indication: BLOOD TESTOSTERONE INCREASED
     Dosage: UNK UNK, UNKNOWN FREQ.
     Route: 065
  3. FIRMAGON [Concomitant]
     Active Substance: DEGARELIX ACETATE
     Indication: PROSTATIC DISORDER
  4. VIAGRA [Suspect]
     Active Substance: SILDENAFIL CITRATE
     Indication: PRODUCT USED FOR UNKNOWN INDICATION
     Route: 065

REACTIONS (1)
  - Dysuria [Unknown]
